FAERS Safety Report 4596897-5 (Version None)
Quarter: 2005Q1

REPORT INFORMATION
  Report Type: 
  Country: None (occurrence: None)
  Receive Date: 20050225
  Receipt Date: 20050210
  Transmission Date: 20050727
  Serious: Yes (Hospitalization)
  Sender: FDA-Public Use
  Company Number: 2005-BP-02227RO

PATIENT
  Age: 76 Year
  Sex: Female

DRUGS (3)
  1. METHOTREXATE [Suspect]
     Indication: ARTHRITIS
     Dosage: 15 MG/WEEK, PO
     Route: 048
  2. PREDNISONE [Concomitant]
  3. INDOMETHACIN [Concomitant]

REACTIONS (3)
  - ACUTE RESPIRATORY FAILURE [None]
  - BRONCHOPULMONARY ASPERGILLOSIS [None]
  - PNEUMOCYSTIS JIROVECI PNEUMONIA [None]
